FAERS Safety Report 5156609-3 (Version None)
Quarter: 2006Q4

REPORT INFORMATION
  Report Type: 
  Country: None (occurrence: None)
  Receive Date: 20061115
  Receipt Date: 20061101
  Transmission Date: 20070319
  Serious: Yes (Other)
  Sender: FDA-Public Use
  Company Number: 232083

PATIENT
  Age: 48 Year
  Sex: Female
  Weight: 86.6 kg

DRUGS (4)
  1. RITUXAN [Suspect]
     Indication: RHEUMATOID ARTHRITIS
     Dosage: INTRAVENOUS
     Route: 042
     Dates: start: 20060721, end: 20060721
  2. RITUXAN [Suspect]
     Indication: RHEUMATOID ARTHRITIS
     Dosage: INTRAVENOUS
     Route: 042
     Dates: start: 20060808, end: 20060808
  3. METHOTREXATE [Suspect]
     Indication: RHEUMATOID ARTHRITIS
     Dosage: 3 UNK, QD, UNK
  4. BENADRYL [Suspect]
     Indication: RHEUMATOID ARTHRITIS

REACTIONS (3)
  - BLISTER [None]
  - NASAL MUCOSAL DISORDER [None]
  - STOMATITIS [None]
